FAERS Safety Report 9163446 (Version 1)
Quarter: 2013Q1

REPORT INFORMATION
  Report Type: Spontaneous
  Country: US (occurrence: None)
  Receive Date: 20130226
  Receipt Date: 20130226
  Transmission Date: 20140127
  Serious: Yes (Hospitalization)
  Sender: FDA-Public Use
  Company Number: DKLU1088941

PATIENT
  Age: 16 Year
  Sex: Male

DRUGS (6)
  1. ELSPAR (ASPARAGINASE) [Suspect]
     Dates: start: 20120902
  2. SPRYCEL [Suspect]
     Dosage: 1 DAY
     Route: 048
     Dates: start: 20120426
  3. ETOPOSIDE (ETOPOSIDE) [Suspect]
     Dates: start: 20120830, end: 20120901
  4. DEXAMETHASONE (DEXAMETHASONE) [Suspect]
     Dates: start: 20120828, end: 20120901
  5. ARA-C (CYTARABINE) [Suspect]
     Dates: start: 20120828, end: 20120829
  6. METHOTREXATE (METHOTREXATE) [Suspect]
     Dates: start: 20120901

REACTIONS (9)
  - Klebsiella sepsis [None]
  - Pleural effusion [None]
  - Renal failure acute [None]
  - Respiratory distress [None]
  - Caecitis [None]
  - Gastrointestinal necrosis [None]
  - Intestinal perforation [None]
  - Peritonitis [None]
  - Pneumonia klebsiella [None]
